APPROVED DRUG PRODUCT: NEOMYCIN & POLYMYXIN B SULFATES & BACITRACIN ZINC & HYDROCORTISONE
Active Ingredient: BACITRACIN ZINC; HYDROCORTISONE; NEOMYCIN SULFATE; POLYMYXIN B SULFATE
Strength: 400 UNITS/GM;1%;EQ 3.5MG BASE/GM;5,000 UNITS/GM
Dosage Form/Route: OINTMENT;TOPICAL
Application: A062381 | Product #001
Applicant: PHARMAFAIR INC
Approved: Sep 6, 1985 | RLD: No | RS: No | Type: DISCN